FAERS Safety Report 16592877 (Version 3)
Quarter: 2019Q3

REPORT INFORMATION
  Report Type: Report from Study
  Country: LB (occurrence: LB)
  Receive Date: 20190718
  Receipt Date: 20190911
  Transmission Date: 20191004
  Serious: Yes (Other)
  Sender: FDA-Public Use
  Company Number: LB-SEATTLE GENETICS-2019SGN02503

PATIENT
  Sex: Female

DRUGS (1)
  1. BRENTUXIMAB VEDOTIN-MPI [Suspect]
     Active Substance: BRENTUXIMAB VEDOTIN
     Indication: HODGKIN^S DISEASE
     Dosage: 117.5 MG, Q21D
     Route: 042
     Dates: start: 20181119, end: 20190712

REACTIONS (3)
  - Nodule [Unknown]
  - Product dose omission [Unknown]
  - Hodgkin^s disease [Unknown]
